FAERS Safety Report 9299136 (Version 1)
Quarter: 2013Q2

REPORT INFORMATION
  Report Type: Spontaneous
  Country: GA (occurrence: GA)
  Receive Date: 20130520
  Receipt Date: 20130520
  Transmission Date: 20140414
  Serious: Yes (Other)
  Sender: FDA-Public Use
  Company Number: GA-MYLANLABS-2013S1010259

PATIENT
  Age: 56 Year
  Sex: Male

DRUGS (1)
  1. CANDESARTAN CILEXETIL W/HYDROCHLOROTHIAZIDE [Suspect]
     Indication: HYPERTENSION
     Dosage: CANDESARTAN 8MG/HYDROCHLOROTHIAZIDE 12.5MG
     Route: 065

REACTIONS (1)
  - Alveolitis [Recovering/Resolving]
